FAERS Safety Report 16276577 (Version 1)
Quarter: 2019Q2

REPORT INFORMATION
  Report Type: Spontaneous
  Country: CA (occurrence: US)
  Receive Date: 20190506
  Receipt Date: 20190506
  Transmission Date: 20190711
  Serious: No
  Sender: FDA-Public Use
  Company Number: CA-PFIZER INC-2019181171

PATIENT
  Sex: Female

DRUGS (1)
  1. CYTOTEC [Suspect]
     Active Substance: MISOPROSTOL
     Indication: LABOUR INDUCTION
     Dosage: 4 DF, EVERY 3 HOURS

REACTIONS (3)
  - Product use in unapproved indication [Unknown]
  - Uterine spasm [Unknown]
  - Vaginal haemorrhage [Unknown]
